FAERS Safety Report 13318557 (Version 1)
Quarter: 2017Q1

REPORT INFORMATION
  Report Type: Spontaneous
  Country: GB (occurrence: GB)
  Receive Date: 20170310
  Receipt Date: 20170310
  Transmission Date: 20170428
  Serious: Yes (Other)
  Sender: FDA-Public Use
  Company Number: US-MYLANLABS-2017M1013135

PATIENT

DRUGS (1)
  1. EPINEPHRINE. [Suspect]
     Active Substance: EPINEPHRINE
     Indication: PRODUCT USED FOR UNKNOWN INDICATION
     Dosage: UNK

REACTIONS (5)
  - Accidental exposure to product [Unknown]
  - Injection site nerve damage [Unknown]
  - Injection site movement impairment [Recovered/Resolved]
  - Injection site pain [Recovered/Resolved]
  - Injection site pallor [Recovered/Resolved]
